FAERS Safety Report 8977635 (Version 2)
Quarter: 2016Q3

REPORT INFORMATION
  Report Type: Spontaneous
  Country: JP (occurrence: JP)
  Receive Date: 20121220
  Receipt Date: 20160818
  Transmission Date: 20161109
  Serious: Yes (Hospitalization, Other)
  Sender: FDA-Public Use
  Company Number: JP-GLAXOSMITHKLINE-B0833950A

PATIENT
  Age: 41 Year
  Sex: Female

DRUGS (1)
  1. LAMOTRIGINE. [Suspect]
     Active Substance: LAMOTRIGINE
     Indication: DEPRESSION
     Route: 048
     Dates: start: 20120904, end: 20120914

REACTIONS (17)
  - Stomatitis [Unknown]
  - Headache [Recovering/Resolving]
  - Ocular hyperaemia [Unknown]
  - Stevens-Johnson syndrome [Unknown]
  - Eye discharge [Unknown]
  - Erythema multiforme [Recovered/Resolved]
  - Drug eruption [Unknown]
  - Malaise [Unknown]
  - Chest discomfort [Recovering/Resolving]
  - Erythema of eyelid [Unknown]
  - Dyspnoea [Recovering/Resolving]
  - Lip erosion [Unknown]
  - Rash maculo-papular [Unknown]
  - Generalised erythema [Unknown]
  - Perivascular dermatitis [Unknown]
  - Rash pruritic [Unknown]
  - Oral mucosa erosion [Unknown]

NARRATIVE: CASE EVENT DATE: 201209
